FAERS Safety Report 23688261 (Version 1)
Quarter: 2024Q1

REPORT INFORMATION
  Report Type: Spontaneous
  Country: JP (occurrence: JP)
  Receive Date: 20240329
  Receipt Date: 20240329
  Transmission Date: 20240410
  Serious: Yes (Other)
  Sender: FDA-Public Use
  Company Number: JP-BRACCO-2024JP01580

PATIENT
  Age: 73 Year
  Sex: Female

DRUGS (5)
  1. IOPAMIDOL [Suspect]
     Active Substance: IOPAMIDOL
     Indication: Interventional procedure
     Dosage: UNK, SINGLE
  2. ARGATROBAN [Concomitant]
     Active Substance: ARGATROBAN
     Dosage: 60 MG, QD
  3. ASPIRIN [Concomitant]
     Active Substance: ASPIRIN
     Indication: Antiplatelet therapy
     Dosage: 100 MG, QD
  4. CLOPIDOGREL [Concomitant]
     Active Substance: CLOPIDOGREL BISULFATE
     Indication: Antiplatelet therapy
     Dosage: 75 MG, QD, FOR 9 DAYS
  5. EDARAVONE [Concomitant]
     Active Substance: EDARAVONE
     Dosage: 30 MG, QD

REACTIONS (1)
  - Contrast encephalopathy [Recovered/Resolved with Sequelae]
